FAERS Safety Report 20703410 (Version 1)
Quarter: 2022Q2

REPORT INFORMATION
  Report Type: Spontaneous
  Country: US (occurrence: US)
  Receive Date: 20220413
  Receipt Date: 20220413
  Transmission Date: 20220721
  Serious: No
  Sender: FDA-Public Use
  Company Number: US-GLAXOSMITHKLINE-US2022AMR061761

PATIENT
  Sex: Male

DRUGS (4)
  1. BENLYSTA [Suspect]
     Active Substance: BELIMUMAB
     Indication: Systemic lupus erythematosus
     Dosage: 400 MG
     Route: 042
  2. BENLYSTA [Suspect]
     Active Substance: BELIMUMAB
     Indication: Vitamin D deficiency
  3. BENLYSTA [Suspect]
     Active Substance: BELIMUMAB
     Indication: Lipoprotein metabolism disorder
  4. BENLYSTA [Suspect]
     Active Substance: BELIMUMAB
     Indication: Proteinuria

REACTIONS (1)
  - Somnolence [Unknown]
